FAERS Safety Report 11419213 (Version 2)
Quarter: 2015Q3

REPORT INFORMATION
  Report Type: Report from Study
  Country: US (occurrence: US)
  Receive Date: 20150826
  Receipt Date: 20150907
  Transmission Date: 20151125
  Serious: Yes (Other)
  Sender: FDA-Public Use
  Company Number: US-BIOGENIDEC-2015BI115861

PATIENT
  Sex: Male

DRUGS (1)
  1. AVONEX [Suspect]
     Active Substance: INTERFERON BETA-1A
     Indication: MULTIPLE SCLEROSIS
     Route: 030
     Dates: start: 20101124

REACTIONS (5)
  - Confusional state [Not Recovered/Not Resolved]
  - Head injury [Unknown]
  - Epilepsy [Recovered/Resolved]
  - Fear [Unknown]
  - General symptom [Not Recovered/Not Resolved]
